FAERS Safety Report 14690334 (Version 1)
Quarter: 2018Q1

REPORT INFORMATION
  Report Type: Spontaneous
  Country: FR (occurrence: FR)
  Receive Date: 20180328
  Receipt Date: 20180328
  Transmission Date: 20180509
  Serious: Yes (Other)
  Sender: FDA-Public Use
  Company Number: FR-MYLANLABS-2018M1018123

PATIENT
  Age: 68 Year
  Sex: Male
  Weight: 73 kg

DRUGS (3)
  1. TAZOCILLINE [Concomitant]
     Active Substance: PIPERACILLIN SODIUM\TAZOBACTAM SODIUM
     Indication: DIABETIC FOOT
     Dosage: UNK
     Route: 065
  2. VANCOMYCIN [Suspect]
     Active Substance: VANCOMYCIN
     Indication: DIABETIC FOOT
     Dosage: UNK
     Route: 065
  3. OFLOXACINE [Concomitant]
     Active Substance: OFLOXACIN
     Indication: DIABETIC FOOT
     Dosage: UNK
     Route: 065

REACTIONS (1)
  - Acute kidney injury [Recovered/Resolved]

NARRATIVE: CASE EVENT DATE: 20161029
